FAERS Safety Report 5489407-1 (Version None)
Quarter: 2007Q4

REPORT INFORMATION
  Report Type: 
  Country: None (occurrence: None)
  Receive Date: 20071016
  Receipt Date: 20071016
  Transmission Date: 20080405
  Serious: Yes (Other)
  Sender: FDA-Public Use
  Company Number: None

PATIENT
  Sex: Male
  Weight: 70.3075 kg

DRUGS (2)
  1. BUDEPRION 150MG EACH TEVA [Suspect]
     Indication: SMOKING CESSATION THERAPY
     Dosage: SEE IMAGE
     Route: 048
     Dates: start: 20070912, end: 20070923
  2. BUDEPRION 150MG EACH TEVA [Suspect]
     Indication: SMOKING CESSATION THERAPY
     Dosage: SEE IMAGE
     Route: 048
     Dates: start: 20070924, end: 20071015

REACTIONS (32)
  - ABNORMAL BEHAVIOUR [None]
  - ABNORMAL DREAMS [None]
  - ADVERSE DRUG REACTION [None]
  - ANXIETY [None]
  - APHASIA [None]
  - CRYING [None]
  - DEPRESSED MOOD [None]
  - DEPRESSION [None]
  - DYSGEUSIA [None]
  - DYSPNOEA [None]
  - FEAR [None]
  - FEELING ABNORMAL [None]
  - FEELING JITTERY [None]
  - FEELINGS OF WORTHLESSNESS [None]
  - HEART RATE INCREASED [None]
  - HYPERVIGILANCE [None]
  - LETHARGY [None]
  - MEMORY IMPAIRMENT [None]
  - NERVOUSNESS [None]
  - OBSESSIVE RUMINATION [None]
  - PANIC ATTACK [None]
  - PANIC REACTION [None]
  - PARANOIA [None]
  - PHOTOPHOBIA [None]
  - PSYCHIATRIC SYMPTOM [None]
  - PSYCHOMOTOR HYPERACTIVITY [None]
  - SENSATION OF PRESSURE [None]
  - SPEECH DISORDER [None]
  - STARING [None]
  - THINKING ABNORMAL [None]
  - TREMOR [None]
  - VISION BLURRED [None]
